FAERS Safety Report 9828522 (Version 1)
Quarter: 2014Q1

REPORT INFORMATION
  Report Type: Spontaneous
  Country: FR (occurrence: FR)
  Receive Date: 20140117
  Receipt Date: 20140117
  Transmission Date: 20141002
  Serious: Yes (Hospitalization)
  Sender: FDA-Public Use
  Company Number: FR-VIIV HEALTHCARE LIMITED-B0959556A

PATIENT
  Age: 53 Year
  Sex: Male

DRUGS (10)
  1. CELSENTRI [Suspect]
     Indication: HIV INFECTION
     Dosage: 150MG TWICE PER DAY
     Route: 048
     Dates: start: 20131214
  2. WELLVONE [Suspect]
     Indication: PRODUCT USED FOR UNKNOWN INDICATION
     Dosage: 750MG TWICE PER DAY
     Route: 048
     Dates: start: 20131130
  3. LAROXYL [Suspect]
     Indication: PRODUCT USED FOR UNKNOWN INDICATION
     Route: 048
     Dates: start: 20131214, end: 20131227
  4. MALOCIDE [Suspect]
     Indication: CEREBRAL TOXOPLASMOSIS
     Dosage: 75MG PER DAY
     Route: 048
     Dates: start: 20131125
  5. INTELENCE [Suspect]
     Indication: HIV INFECTION
     Dosage: 200MG TWICE PER DAY
     Route: 048
     Dates: start: 20131214
  6. KALETRA [Suspect]
     Indication: HIV INFECTION
     Dosage: 100MG TWICE PER DAY
     Route: 048
     Dates: start: 20131214
  7. ISENTRESS [Suspect]
     Indication: HIV INFECTION
     Dosage: 400MG TWICE PER DAY
     Route: 048
     Dates: start: 20131214
  8. DALACIN [Suspect]
     Indication: PRODUCT USED FOR UNKNOWN INDICATION
     Dosage: 600MG THREE TIMES PER DAY
     Route: 048
     Dates: start: 20131130
  9. LEDERFOLIN [Suspect]
     Indication: CEREBRAL TOXOPLASMOSIS
     Dosage: 25MG FOUR TIMES PER WEEK
     Route: 048
     Dates: start: 20131125
  10. KEPPRA [Concomitant]
     Indication: PRODUCT USED FOR UNKNOWN INDICATION
     Route: 065
     Dates: start: 20131129

REACTIONS (4)
  - Status epilepticus [Recovering/Resolving]
  - Aggression [Recovering/Resolving]
  - Agitation [Recovering/Resolving]
  - Negativism [Recovering/Resolving]
